FAERS Safety Report 13642998 (Version 2)
Quarter: 2017Q2

REPORT INFORMATION
  Report Type: Spontaneous
  Country: US (occurrence: US)
  Receive Date: 20170612
  Receipt Date: 20170628
  Transmission Date: 20170830
  Serious: Yes (Hospitalization, Other)
  Sender: FDA-Public Use
  Company Number: US-PFIZER INC-2017249571

PATIENT
  Age: 72 Year
  Sex: Female
  Weight: 91 kg

DRUGS (10)
  1. BENICAR [Concomitant]
     Active Substance: OLMESARTAN MEDOXOMIL
     Indication: HYPERTENSION
     Dosage: 20 MG, 1X/DAY (20MG ONCE A DAY)
     Dates: start: 2010
  2. LOTEMAX [Concomitant]
     Active Substance: LOTEPREDNOL ETABONATE
     Dosage: UNK UNK, 4X/DAY
  3. LATANOPROST. [Suspect]
     Active Substance: LATANOPROST
     Indication: GLAUCOMA
     Dosage: 0.005% 2.5ML, 2 GTT, 1X/DAY (1 DROP IN EACH EACH EVERY EVENING)
     Dates: start: 2010
  4. ISOSORBIDE. [Concomitant]
     Active Substance: ISOSORBIDE
     Dosage: 30 MG, DAILY
  5. LATANOPROST. [Suspect]
     Active Substance: LATANOPROST
     Indication: INTRAOCULAR PRESSURE INCREASED
     Dosage: 0.005% 2.5ML, 2 GTT, 1X/DAY (1 DAILY BOTH EYE)
     Dates: start: 2010
  6. BENICAR [Concomitant]
     Active Substance: OLMESARTAN MEDOXOMIL
     Dosage: 20 MG, DAILY
     Dates: start: 2010
  7. PROLENSA [Concomitant]
     Active Substance: BROMFENAC SODIUM
     Dosage: 1 DF, DAILY
  8. CIPROFLOXACIN. [Concomitant]
     Active Substance: CIPROFLOXACIN
     Dosage: UNK UNK, 4X/DAY
  9. LATANOPROST. [Suspect]
     Active Substance: LATANOPROST
     Indication: OPEN ANGLE GLAUCOMA
     Dosage: 0.005% 2.5ML, 2 GTT, 1X/DAY (1 DAILY BOTH EYE)
     Dates: start: 2010
  10. SIMVASTATIN. [Concomitant]
     Active Substance: SIMVASTATIN
     Dosage: 20 MG, UNK
     Dates: start: 2010

REACTIONS (2)
  - Eye disorder [Not Recovered/Not Resolved]
  - Blindness unilateral [Not Recovered/Not Resolved]

NARRATIVE: CASE EVENT DATE: 201701
